FAERS Safety Report 18707592 (Version 1)
Quarter: 2021Q1

REPORT INFORMATION
  Report Type: Spontaneous
  Country: US (occurrence: US)
  Receive Date: 20210106
  Receipt Date: 20210106
  Transmission Date: 20210419
  Serious: No
  Sender: FDA-Public Use
  Company Number: None

PATIENT
  Age: 21 Year
  Sex: Male
  Weight: 67.5 kg

DRUGS (1)
  1. AMNESTEEM [Suspect]
     Active Substance: ISOTRETINOIN
     Route: 048
     Dates: start: 20200101, end: 20200224

REACTIONS (2)
  - Urethritis [None]
  - Haematochezia [None]

NARRATIVE: CASE EVENT DATE: 20200224
